FAERS Safety Report 4655592-4 (Version None)
Quarter: 2005Q2

REPORT INFORMATION
  Report Type: 
  Country: None (occurrence: None)
  Receive Date: 20050505
  Receipt Date: 20050422
  Transmission Date: 20051028
  Serious: Yes (Other)
  Sender: FDA-Public Use
  Company Number: 2005064633

PATIENT
  Age: 44 Year
  Sex: Male
  Weight: 79.3795 kg

DRUGS (1)
  1. BEXTRA [Suspect]
     Indication: BACK DISORDER
     Dosage: 20 MG (20 MG, 1 IN 1 D)

REACTIONS (1)
  - CEREBROVASCULAR ACCIDENT [None]
